FAERS Safety Report 12886144 (Version 1)
Quarter: 2016Q4

REPORT INFORMATION
  Report Type: Spontaneous
  Country: US (occurrence: US)
  Receive Date: 20161026
  Receipt Date: 20161026
  Transmission Date: 20170207
  Serious: Yes (Hospitalization)
  Sender: FDA-Public Use
  Company Number: US-TEVA-707050USA

PATIENT
  Sex: Male

DRUGS (1)
  1. PROAIR RESPICLICK [Suspect]
     Active Substance: ALBUTEROL SULFATE
     Indication: ASTHMA
     Route: 055

REACTIONS (2)
  - Pneumothorax [Recovering/Resolving]
  - Aspiration pleural cavity [Recovering/Resolving]

NARRATIVE: CASE EVENT DATE: 20160927
